FAERS Safety Report 15823499 (Version 1)
Quarter: 2019Q1

REPORT INFORMATION
  Report Type: Spontaneous
  Country: SE (occurrence: SE)
  Receive Date: 20190114
  Receipt Date: 20190114
  Transmission Date: 20190417
  Serious: Yes (Death, Hospitalization, Other)
  Sender: FDA-Public Use
  Company Number: PHHY2019SE005490

PATIENT
  Age: 42 Year
  Sex: Female

DRUGS (3)
  1. EPIRUBICIN [Suspect]
     Active Substance: EPIRUBICIN
     Indication: BREAST CANCER STAGE II
     Dosage: 75 MG/M2, CYCLIC  (EVERY THREE WEEKS FOR ONE CYCLE)
     Route: 042
  2. DOCETAXEL. [Suspect]
     Active Substance: DOCETAXEL
     Indication: BREAST CANCER STAGE II
     Dosage: 75 MG/M2, CYCLIC (EVERY THREE WEEKS FOR ONE CYCLE)
     Route: 042
  3. PEGFILGRASTIM [Suspect]
     Active Substance: PEGFILGRASTIM
     Indication: PROPHYLAXIS
     Route: 065

REACTIONS (7)
  - Febrile neutropenia [Fatal]
  - Intestinal perforation [Fatal]
  - Cardiac arrest [Fatal]
  - Neutropenic colitis [Fatal]
  - Drug ineffective [Fatal]
  - Septic shock [Fatal]
  - Toxicity to various agents [Fatal]
